FAERS Safety Report 7288998-8 (Version None)
Quarter: 2011Q1

REPORT INFORMATION
  Report Type: 
  Country: None (occurrence: None)
  Receive Date: 20110211
  Receipt Date: 20110207
  Transmission Date: 20110831
  Serious: Yes (Death, Other)
  Sender: FDA-Public Use
  Company Number: PHHY2011ES07684

PATIENT
  Age: 68 Year
  Sex: Male

DRUGS (3)
  1. CYCLOSPORINE [Suspect]
  2. PREDNISONE TAB [Suspect]
  3. AZATHIOPRINE [Suspect]

REACTIONS (10)
  - BRONCHOPNEUMONIA [None]
  - METASTASES TO LYMPH NODES [None]
  - NEUROENDOCRINE CARCINOMA OF THE SKIN [None]
  - SQUAMOUS CELL CARCINOMA [None]
  - RASH ERYTHEMATOUS [None]
  - LYMPHADENOPATHY [None]
  - THROMBOCYTOPENIA [None]
  - RENAL IMPAIRMENT [None]
  - ACUTE RESPIRATORY FAILURE [None]
  - SKIN LESION [None]
